FAERS Safety Report 9409306 (Version 2)
Quarter: 2013Q3

REPORT INFORMATION
  Report Type: Spontaneous
  Country: US (occurrence: US)
  Receive Date: 20130719
  Receipt Date: 20130919
  Transmission Date: 20140515
  Serious: Yes (Other)
  Sender: FDA-Public Use
  Company Number: US-PFIZER INC-2013211460

PATIENT
  Age: 52 Year
  Sex: Female
  Weight: 64.85 kg

DRUGS (7)
  1. PRISTIQ [Suspect]
     Indication: DEPRESSION
     Dosage: UNKNOWN DOSE DAILY
     Route: 048
     Dates: start: 201304, end: 2013
  2. PRISTIQ [Suspect]
     Indication: ANXIETY
     Dosage: 100 MG DAILY
     Route: 048
     Dates: start: 201306, end: 2013
  3. PRISTIQ [Suspect]
     Indication: PANIC ATTACK
     Dosage: 100 MG, ALTERNATE DAY
     Route: 048
     Dates: start: 2013, end: 20130712
  4. PRISTIQ [Suspect]
     Indication: PSYCHOTIC BEHAVIOUR
  5. PRISTIQ [Suspect]
     Indication: HOMICIDAL IDEATION
  6. PRISTIQ [Suspect]
     Indication: HALLUCINATION
  7. CLONIDINE [Concomitant]
     Indication: HYPERTENSION
     Dosage: 2 MG, 1X/DAY
     Route: 048

REACTIONS (12)
  - Abasia [Not Recovered/Not Resolved]
  - Panic attack [Not Recovered/Not Resolved]
  - Nausea [Unknown]
  - Dizziness [Unknown]
  - Cold sweat [Unknown]
  - Vertigo [Not Recovered/Not Resolved]
  - Balance disorder [Not Recovered/Not Resolved]
  - Activities of daily living impaired [Not Recovered/Not Resolved]
  - Agitation [Not Recovered/Not Resolved]
  - Skin burning sensation [Not Recovered/Not Resolved]
  - Skin disorder [Not Recovered/Not Resolved]
  - Pain [Not Recovered/Not Resolved]
